FAERS Safety Report 5528310-5 (Version None)
Quarter: 2007Q4

REPORT INFORMATION
  Report Type: 
  Country: None (occurrence: None)
  Receive Date: 20071128
  Receipt Date: 20071119
  Transmission Date: 20080405
  Serious: Yes (Other)
  Sender: FDA-Public Use
  Company Number: US-PFIZER INC-2007097307

PATIENT
  Age: 84 Year
  Sex: Female

DRUGS (3)
  1. GLUCOTROL XL [Suspect]
  2. CELEXA [Concomitant]
  3. LOPRESSOR [Concomitant]

REACTIONS (1)
  - INFECTION [None]
